FAERS Safety Report 6492657-9 (Version None)
Quarter: 2009Q4

REPORT INFORMATION
  Report Type: 
  Country: None (occurrence: None)
  Receive Date: 20091211
  Receipt Date: 20091211
  Transmission Date: 20100525
  Serious: Yes (Life-Threatening)
  Sender: FDA-Public Use
  Company Number: None

PATIENT
  Sex: Female

DRUGS (2)
  1. REMICADE [Suspect]
     Indication: PSORIATIC ARTHROPATHY
     Dosage: 300 MG Q 8 WKS IV
     Route: 042
     Dates: start: 20071201, end: 20090101
  2. METHOTREXATE [Concomitant]

REACTIONS (1)
  - LUNG ADENOCARCINOMA [None]
